FAERS Safety Report 8383986-2 (Version None)
Quarter: 2012Q2

REPORT INFORMATION
  Report Type: 
  Country: None (occurrence: None)
  Receive Date: 20120524
  Receipt Date: 20120515
  Transmission Date: 20120825
  Serious: Yes (Life-Threatening, Other)
  Sender: FDA-Public Use
  Company Number: US-MILLENNIUM PHARMACEUTICALS, INC.-2012-03519

PATIENT
  Sex: Male

DRUGS (25)
  1. OXYCODONE HCL [Concomitant]
     Indication: PRODUCT USED FOR UNKNOWN INDICATION
     Dosage: 5 MG, UNK
     Route: 048
     Dates: start: 20120206
  2. POTASSIUM CHLORIDE [Concomitant]
     Dosage: 20 MEQ, UNK
     Route: 048
     Dates: start: 20110303
  3. PANTOPRAZOLE [Concomitant]
     Dosage: 40 MG, UNK
     Route: 048
     Dates: start: 20110211
  4. TAMSULOSIN HCL [Concomitant]
     Indication: PRODUCT USED FOR UNKNOWN INDICATION
     Dosage: 0.4 MG, UNK
     Route: 048
     Dates: start: 20120127
  5. LYRICA [Concomitant]
     Dosage: 150 UNK, UNK
     Route: 048
     Dates: start: 20110418
  6. VELCADE [Suspect]
     Indication: MULTIPLE MYELOMA
  7. SULFAMETHOXAZOLE AND TRIMETHOPRIM [Concomitant]
     Indication: PRODUCT USED FOR UNKNOWN INDICATION
     Dosage: UNK
     Dates: start: 20120206
  8. PANTOPRAZOLE [Concomitant]
     Indication: PRODUCT USED FOR UNKNOWN INDICATION
     Dosage: 40 MG, UNK
     Route: 048
     Dates: start: 20120127
  9. LYRICA [Concomitant]
     Indication: PRODUCT USED FOR UNKNOWN INDICATION
     Dosage: 150 MG, UNK
     Route: 048
     Dates: start: 20110418
  10. MELPHALAN HYDROCHLORIDE [Concomitant]
     Indication: MULTIPLE MYELOMA
     Dosage: 10 MG, CYCLIC
     Route: 048
     Dates: start: 20110419
  11. OXYCONTIN [Concomitant]
     Indication: PRODUCT USED FOR UNKNOWN INDICATION
     Dosage: 60 MG, UNK
     Route: 048
     Dates: start: 20120206
  12. OXYCODONE HCL [Concomitant]
     Dosage: 5 MG, UNK
     Route: 048
     Dates: start: 20110415
  13. AMLODIPINE BESYLATE [Concomitant]
     Dosage: 10 MG, UNK
     Route: 048
     Dates: start: 20110211
  14. CYMBALTA [Concomitant]
     Dosage: 10 MG, UNK
     Route: 048
     Dates: start: 20110322
  15. PREDNISONE [Concomitant]
     Indication: MULTIPLE MYELOMA
     Dosage: 100 MG, CYCLIC
     Route: 048
     Dates: start: 20110401
  16. POTASSIUM CHLORIDE [Concomitant]
     Indication: PRODUCT USED FOR UNKNOWN INDICATION
     Dosage: 20 MEQ, UNK
     Route: 048
     Dates: start: 20120227
  17. AMLODIPINE BESYLATE [Concomitant]
     Indication: PRODUCT USED FOR UNKNOWN INDICATION
     Dosage: 10 MG, UNK
     Route: 048
     Dates: start: 20120127
  18. TAMSULOSIN HCL [Concomitant]
     Dosage: 0.4 UNK, UNK
     Route: 048
     Dates: start: 20120404
  19. ASPIRIN [Concomitant]
     Indication: THROMBOSIS PROPHYLAXIS
     Dosage: 325 MG, UNK
     Route: 048
     Dates: start: 20111109
  20. ATENOLOL [Concomitant]
     Indication: PRODUCT USED FOR UNKNOWN INDICATION
     Dosage: 100 MG, UNK
     Route: 048
     Dates: start: 20110127
  21. ATENOLOL [Concomitant]
     Dosage: 100 MG, UNK
     Route: 048
     Dates: start: 20120127
  22. CYMBALTA [Concomitant]
     Indication: PRODUCT USED FOR UNKNOWN INDICATION
     Dosage: 30 MG, UNK
     Route: 048
     Dates: start: 20110322
  23. PROCHLORPERAZINE [Concomitant]
     Indication: PRODUCT USED FOR UNKNOWN INDICATION
     Dosage: 10 MG, UNK
     Route: 048
  24. REVLIMID [Suspect]
     Indication: MULTIPLE MYELOMA
     Dosage: 5 MG, CYCLIC
     Route: 048
     Dates: start: 20110401
  25. OXYCONTIN [Concomitant]
     Dosage: 20 MG, UNK
     Dates: start: 20110415

REACTIONS (3)
  - PERIPHERAL MOTOR NEUROPATHY [None]
  - THROMBOPHLEBITIS SUPERFICIAL [None]
  - PHRENIC NERVE PARALYSIS [None]
